FAERS Safety Report 24443632 (Version 2)
Quarter: 2024Q4

REPORT INFORMATION
  Report Type: Report from Study
  Country: US (occurrence: US)
  Receive Date: 20241016
  Receipt Date: 20241017
  Transmission Date: 20250115
  Serious: No
  Sender: ROCHE
  Company Number: US-ROCHE-1917482

PATIENT
  Age: 42 Year
  Sex: Male

DRUGS (6)
  1. RITUXAN [Suspect]
     Active Substance: RITUXIMAB
     Indication: Multiple sclerosis
     Dosage: DATE OF SERVICE: 11/MAY/2023? FREQUENCY TEXT:DAY 1 AND DAY 15
     Route: 042
  2. RITUXAN [Suspect]
     Active Substance: RITUXIMAB
     Route: 042
     Dates: start: 20161230
  3. RITUXAN [Suspect]
     Active Substance: RITUXIMAB
     Route: 042
     Dates: start: 20170113
  4. RITUXAN [Suspect]
     Active Substance: RITUXIMAB
     Dosage: DATE OF SERVICES: 24/JAN/2018 AND 21/FEB/2019? FREQUENCY TEXT:DAY 1 AND DAY 15 AND EVERY SIX MONTHS
     Route: 042
  5. RITUXAN [Suspect]
     Active Substance: RITUXIMAB
     Dosage: DAY1, DAY15 AND EVERY 6 MONTHS
     Route: 042
     Dates: start: 20220922
  6. RITUXAN [Suspect]
     Active Substance: RITUXIMAB
     Dosage: DAY1, DAY15 AND EVERY 6 MONTHS
     Route: 042
     Dates: start: 20221010

REACTIONS (2)
  - Off label use [Unknown]
  - No adverse event [Unknown]
